FAERS Safety Report 25168533 (Version 3)
Quarter: 2025Q4

REPORT INFORMATION
  Report Type: Spontaneous
  Country: US (occurrence: US)
  Receive Date: 20250407
  Receipt Date: 20251007
  Transmission Date: 20260118
  Serious: No
  Sender: FERRING
  Company Number: US-FERRINGPH-2025FE01182

PATIENT
  Sex: Female
  Weight: 74.83 kg

DRUGS (11)
  1. ADSTILADRIN [Suspect]
     Active Substance: NADOFARAGENE FIRADENOVEC-VNCG
     Indication: Bladder transitional cell carcinoma
     Dosage: 75 MG, EVERY 3 MONTHS
     Route: 043
     Dates: start: 20250213
  2. TYLENOL [Concomitant]
     Active Substance: ACETAMINOPHEN
     Dosage: 500 MG
     Route: 048
  3. VITAMIN C [Concomitant]
     Active Substance: ASCORBIC ACID
     Dosage: 100 MG, 1 TIME DAILY
     Route: 048
  4. VITAMIN D3 [Concomitant]
     Active Substance: CHOLECALCIFEROL
     Dosage: UNK
     Route: 048
  5. VITAMIN B12 [Concomitant]
     Active Substance: CYANOCOBALAMIN
     Dosage: 1 ML, EVERY 2ND WEEK FOR 90 DAYS
     Route: 030
     Dates: start: 20240516
  6. FLEXERIL [Concomitant]
     Active Substance: CYCLOBENZAPRINE HYDROCHLORIDE
     Indication: Muscle spasms
     Dosage: 5 MG, AS NEEDED 2 TIMES DAILY
     Route: 048
     Dates: start: 20250213, end: 20250326
  7. GARLIQUE [Concomitant]
     Active Substance: GARLIC
     Dosage: 18000 UG, 1 TIME DAILY IN THE MORNING
     Route: 048
  8. DIETARY SUPPLEMENT\HERBALS\MILK THISTLE [Concomitant]
     Active Substance: MILK THISTLE
     Dosage: 175 MG, 1 TIME DAILY
     Route: 048
  9. VITAMINS [Concomitant]
     Active Substance: VITAMINS
     Dosage: 1 DOSAGE FORM, 1 TIME DAILY
     Route: 048
  10. PRILOSEC [Concomitant]
     Active Substance: OMEPRAZOLE MAGNESIUM
     Dosage: 20 MG, 1 TIME DAILY AT NIGHT
     Route: 048
  11. VITAMIN E [Concomitant]
     Active Substance: .ALPHA.-TOCOPHEROL
     Dosage: 45 MG
     Route: 065

REACTIONS (6)
  - Fatigue [Recovered/Resolved]
  - Fatigue [Recovered/Resolved]
  - Bladder spasm [Unknown]
  - Influenza like illness [Recovered/Resolved]
  - Bladder discomfort [Unknown]
  - Pain [Unknown]

NARRATIVE: CASE EVENT DATE: 20250101
